FAERS Safety Report 5064790-X (Version None)
Quarter: 2006Q3

REPORT INFORMATION
  Report Type: 
  Country: None (occurrence: None)
  Receive Date: 20060728
  Receipt Date: 20060720
  Transmission Date: 20061208
  Serious: Yes (Other)
  Sender: FDA-Public Use
  Company Number: PHHO2006IL11887

PATIENT
  Age: 51 Year
  Sex: Female
  Weight: 60 kg

DRUGS (2)
  1. ZOLEDRONATE [Suspect]
     Indication: BREAST CANCER
     Dosage: 4MG
     Route: 042
     Dates: start: 20060130
  2. FEMARA [Concomitant]
     Indication: BREAST CANCER
     Dosage: 3.5 MG, QD
     Route: 048

REACTIONS (3)
  - DENTAL CARIES [None]
  - OSTEONECROSIS [None]
  - PAIN IN JAW [None]
